FAERS Safety Report 20973567 (Version 1)
Quarter: 2022Q2

REPORT INFORMATION
  Report Type: Spontaneous
  Country: US (occurrence: US)
  Receive Date: 20220617
  Receipt Date: 20220617
  Transmission Date: 20220721
  Serious: Yes (Other)
  Sender: FDA-Public Use
  Company Number: US-SA-SAC20220613001429

PATIENT
  Age: 7 Year
  Sex: Female

DRUGS (6)
  1. ZANTAC [Suspect]
     Active Substance: RANITIDINE HYDROCHLORIDE
     Indication: Dyspepsia
     Dosage: UNK, FREQUENCY:OTHER
     Route: 065
     Dates: start: 198001, end: 201701
  2. ZANTAC [Suspect]
     Active Substance: RANITIDINE HYDROCHLORIDE
     Indication: Hyperchlorhydria
  3. ZANTAC [Suspect]
     Active Substance: RANITIDINE HYDROCHLORIDE
     Indication: Abdominal discomfort
  4. ZANTAC [Suspect]
     Active Substance: RANITIDINE HYDROCHLORIDE
     Indication: Gastrooesophageal reflux disease
  5. ZANTAC [Suspect]
     Active Substance: RANITIDINE HYDROCHLORIDE
     Indication: Erosive oesophagitis
  6. ZANTAC [Suspect]
     Active Substance: RANITIDINE HYDROCHLORIDE
     Indication: Intestinal ulcer

REACTIONS (12)
  - Breast cancer stage II [Not Recovered/Not Resolved]
  - Seizure [Unknown]
  - Migraine [Unknown]
  - Neoplasm malignant [Unknown]
  - Lymphoedema [Unknown]
  - Autoimmune disorder [Unknown]
  - Decreased activity [Unknown]
  - Abdominal discomfort [Unknown]
  - Illness [Unknown]
  - Mastectomy [Unknown]
  - Chemotherapy [Unknown]
  - Radiotherapy [Unknown]

NARRATIVE: CASE EVENT DATE: 19800101
